FAERS Safety Report 13838337 (Version 1)
Quarter: 2017Q3

REPORT INFORMATION
  Report Type: Spontaneous
  Country: FR (occurrence: FR)
  Receive Date: 20170807
  Receipt Date: 20170807
  Transmission Date: 20171127
  Serious: Yes (Hospitalization, Other)
  Sender: FDA-Public Use
  Company Number: FR-BRISTOL-MYERS SQUIBB COMPANY-BMS-2017-066853

PATIENT
  Age: 81 Year
  Sex: Female

DRUGS (3)
  1. LOVENOX [Suspect]
     Active Substance: ENOXAPARIN SODIUM
     Indication: PRODUCT USED FOR UNKNOWN INDICATION
     Dosage: 0.4 ML, QD
     Route: 050
  2. LOVENOX [Suspect]
     Active Substance: ENOXAPARIN SODIUM
     Indication: ATRIAL FIBRILLATION
     Dosage: 0.6 ML, BID
     Route: 050
     Dates: start: 20140402, end: 20140417
  3. COUMADINE [Suspect]
     Active Substance: WARFARIN SODIUM
     Indication: ATRIAL FIBRILLATION
     Dosage: 1 TAB, QD
     Route: 048
     Dates: start: 20140402, end: 20140417

REACTIONS (4)
  - Haemoglobin decreased [Recovering/Resolving]
  - Atrial fibrillation [Unknown]
  - Shock haemorrhagic [Recovered/Resolved]
  - Muscle haemorrhage [Recovering/Resolving]

NARRATIVE: CASE EVENT DATE: 20140417
